FAERS Safety Report 8057165 (Version 2)
Quarter: 2016Q1

REPORT INFORMATION
  Report Type: Spontaneous
  Country: JP (occurrence: JP)
  Receive Date: 20110727
  Receipt Date: 20160125
  Transmission Date: 20160526
  Serious: Yes (Hospitalization, Other)
  Sender: FDA-Public Use
  Company Number: JP-GLAXOSMITHKLINE-B0713812A

PATIENT
  Age: 23 Year
  Sex: Male

DRUGS (6)
  1. ANAVAN [Concomitant]
     Indication: HERPES ZOSTER
     Route: 054
     Dates: start: 20101030
  2. VOLTAREN [Concomitant]
     Active Substance: DICLOFENAC SODIUM
     Indication: HERPES ZOSTER
     Route: 048
     Dates: start: 20101030, end: 20101108
  3. VITAMEDIN [Suspect]
     Active Substance: CYANOCOBALAMIN\PYRIDOXINE HYDROCHLORIDE\THIAMINE
     Indication: HERPES ZOSTER
     Route: 048
     Dates: start: 20101030
  4. VALACICLOVIR HYDROCHLORIDE [Suspect]
     Active Substance: VALACYCLOVIR HYDROCHLORIDE
     Route: 048
  5. COCARL [Concomitant]
     Active Substance: ACETAMINOPHEN
     Route: 048
  6. ACYCLOVIR. [Suspect]
     Active Substance: ACYCLOVIR
     Indication: HERPES ZOSTER
     Dosage: 800 MG, TID
     Route: 048
     Dates: start: 20101030, end: 20101107

REACTIONS (12)
  - Drug eruption [Recovered/Resolved]
  - Erythema [Recovered/Resolved]
  - Drug-induced liver injury [Recovering/Resolving]
  - Swelling face [Recovering/Resolving]
  - Alanine aminotransferase increased [Recovering/Resolving]
  - Drug eruption [Unknown]
  - Lymphadenopathy [Recovering/Resolving]
  - Erythema [Unknown]
  - Face oedema [Recovering/Resolving]
  - Papule [Recovering/Resolving]
  - Erythema [Recovering/Resolving]
  - Pyrexia [Recovering/Resolving]

NARRATIVE: CASE EVENT DATE: 20101105
